FAERS Safety Report 13084479 (Version 2)
Quarter: 2017Q1

REPORT INFORMATION
  Report Type: Spontaneous
  Country: JP (occurrence: JP)
  Receive Date: 20170104
  Receipt Date: 20170130
  Transmission Date: 20170428
  Serious: Yes (Death)
  Sender: FDA-Public Use
  Company Number: JP-BAYER-2016-245499

PATIENT
  Age: 71 Year
  Sex: Male

DRUGS (2)
  1. NEXAVAR [Suspect]
     Active Substance: SORAFENIB
     Indication: HEPATOCELLULAR CARCINOMA
     Dosage: 200 MG, BID
     Route: 048
     Dates: start: 20161121, end: 20161206
  2. TAKEPRON [Concomitant]
     Active Substance: LANSOPRAZOLE
     Indication: GASTRIC ULCER
     Dosage: DAILY DOSE 15 MG
     Route: 048
     Dates: start: 20160924, end: 20161211

REACTIONS (8)
  - Disseminated intravascular coagulation [Fatal]
  - Shock haemorrhagic [Fatal]
  - Anaemia [None]
  - Cardio-respiratory arrest [Fatal]
  - Liver carcinoma ruptured [Fatal]
  - Rhabdomyolysis [Fatal]
  - Hepatic function abnormal [Fatal]
  - Respiratory arrest [Fatal]

NARRATIVE: CASE EVENT DATE: 20161207
